FAERS Safety Report 19086235 (Version 1)
Quarter: 2021Q2

REPORT INFORMATION
  Report Type: Other
  Country: GB (occurrence: GB)
  Receive Date: 20210402
  Receipt Date: 20210402
  Transmission Date: 20210717
  Serious: Yes (Hospitalization, Other)
  Sender: FDA-Public Use
  Company Number: GB-FDC LIMITED-2108829

PATIENT
  Sex: Female

DRUGS (7)
  1. CEFOXITIN [Suspect]
     Active Substance: CEFOXITIN SODIUM
     Route: 042
  2. MOXIFLOXACIN. [Suspect]
     Active Substance: MOXIFLOXACIN
     Route: 042
  3. CIPROFLOXACIN. [Suspect]
     Active Substance: CIPROFLOXACIN
     Indication: MYCOBACTERIUM ABSCESSUS INFECTION
     Route: 042
  4. AMIKACIN SULFATE. [Suspect]
     Active Substance: AMIKACIN SULFATE
     Route: 042
  5. TIGECYCLINE. [Suspect]
     Active Substance: TIGECYCLINE
     Route: 042
  6. CLARITHROMYCIN. [Suspect]
     Active Substance: CLARITHROMYCIN
     Route: 042
  7. IMEPENEM [Suspect]
     Active Substance: IMIPENEM
     Route: 042

REACTIONS (4)
  - Nausea [Unknown]
  - Deafness [Unknown]
  - Abdominal pain [Unknown]
  - Vomiting [Unknown]
